FAERS Safety Report 9896795 (Version 2)
Quarter: 2014Q1

REPORT INFORMATION
  Report Type: Spontaneous
  Country: US (occurrence: US)
  Receive Date: 20140213
  Receipt Date: 20140213
  Transmission Date: 20141002
  Serious: No
  Sender: FDA-Public Use
  Company Number: US-BRISTOL-MYERS SQUIBB COMPANY-19202704

PATIENT
  Age: 53 Year
  Sex: Female
  Weight: 48.52 kg

DRUGS (9)
  1. ABATACEPT SUBQ INJECTION 125MG/ML [Suspect]
     Indication: RHEUMATOID ARTHRITIS
     Dosage: 1 DF: 125MG/ML,PBS (4 PACK)
     Route: 058
  2. CALTRATE + D [Concomitant]
     Dosage: CALTRATE+D TAB 600-800
  3. FOSAMAX [Concomitant]
     Dosage: TAB
  4. XANAX [Concomitant]
     Dosage: TAB
  5. METHOTREXATE TABS [Concomitant]
     Dosage: TAB
  6. CHANTIX [Concomitant]
     Dosage: TAB
  7. LYRICA [Concomitant]
     Dosage: CAP
  8. TRAZODONE HCL TABS 50 MG [Concomitant]
     Dosage: TAB
  9. FOLIC ACID [Concomitant]
     Dosage: TAB

REACTIONS (2)
  - Musculoskeletal stiffness [Unknown]
  - Pain [Unknown]
